FAERS Safety Report 23382467 (Version 2)
Quarter: 2024Q2

REPORT INFORMATION
  Report Type: Spontaneous
  Country: US (occurrence: US)
  Receive Date: 20240109
  Receipt Date: 20240527
  Transmission Date: 20240715
  Serious: No
  Sender: FDA-Public Use
  Company Number: US-BIOGEN-2019BI00814339

PATIENT
  Age: 45 Year
  Sex: Male

DRUGS (17)
  1. TECFIDERA [Suspect]
     Active Substance: DIMETHYL FUMARATE
     Indication: Multiple sclerosis
     Route: 050
     Dates: start: 20190124
  2. TECFIDERA [Suspect]
     Active Substance: DIMETHYL FUMARATE
     Dosage: STARTING DOSE
     Route: 050
     Dates: start: 20180622, end: 20180628
  3. TECFIDERA [Suspect]
     Active Substance: DIMETHYL FUMARATE
     Dosage: MAINTENANCE DOSE
     Route: 050
     Dates: start: 20180629
  4. ASPIRIN [Concomitant]
     Active Substance: ASPIRIN
     Route: 050
  5. LEXAPRO [Concomitant]
     Active Substance: ESCITALOPRAM OXALATE
     Route: 050
  6. LEXAPRO [Concomitant]
     Active Substance: ESCITALOPRAM OXALATE
     Route: 050
  7. LOPRESSOR [Concomitant]
     Active Substance: METOPROLOL TARTRATE
     Route: 050
  8. LOPRESSOR [Concomitant]
     Active Substance: METOPROLOL TARTRATE
     Route: 050
  9. TYLENOL [Concomitant]
     Active Substance: ACETAMINOPHEN
     Route: 050
  10. XANAX [Concomitant]
     Active Substance: ALPRAZOLAM
     Route: 050
  11. XANAX [Concomitant]
     Active Substance: ALPRAZOLAM
     Route: 050
  12. LIVALO [Concomitant]
     Active Substance: PITAVASTATIN CALCIUM
     Route: 050
  13. LIVALO [Concomitant]
     Active Substance: PITAVASTATIN CALCIUM
     Route: 050
  14. VITAMIN C [Concomitant]
     Active Substance: ASCORBIC ACID
     Route: 050
  15. VITAMIN C [Concomitant]
     Active Substance: ASCORBIC ACID
     Route: 050
  16. VITAMIN D3 [Concomitant]
     Active Substance: CHOLECALCIFEROL
     Route: 050
  17. VITAMIN D3 [Concomitant]
     Active Substance: CHOLECALCIFEROL
     Route: 050

REACTIONS (12)
  - Product dose omission issue [Unknown]
  - Gastrointestinal disorder [Not Recovered/Not Resolved]
  - Testicular disorder [Not Recovered/Not Resolved]
  - Multiple sclerosis relapse [Not Recovered/Not Resolved]
  - Flatulence [Not Recovered/Not Resolved]
  - COVID-19 [Not Recovered/Not Resolved]
  - Vomiting [Not Recovered/Not Resolved]
  - Dizziness [Not Recovered/Not Resolved]
  - Pain [Not Recovered/Not Resolved]
  - Sensory disturbance [Not Recovered/Not Resolved]
  - Fatigue [Not Recovered/Not Resolved]
  - Flushing [Not Recovered/Not Resolved]

NARRATIVE: CASE EVENT DATE: 20200304
